FAERS Safety Report 6675483-7 (Version None)
Quarter: 2010Q2

REPORT INFORMATION
  Report Type: 
  Country: None (occurrence: None)
  Receive Date: 20100409
  Receipt Date: 20100402
  Transmission Date: 20101027
  Serious: Yes (Other)
  Sender: FDA-Public Use
  Company Number: B0634837A

PATIENT
  Sex: Female

DRUGS (5)
  1. ALKERAN [Suspect]
     Route: 042
     Dates: start: 20100201, end: 20100205
  2. ZOMETA [Suspect]
     Route: 042
     Dates: start: 20100128, end: 20100128
  3. THALIDOMIDE [Suspect]
     Route: 048
     Dates: start: 20100201, end: 20100207
  4. SOLUPRED [Suspect]
     Route: 065
     Dates: start: 20100201, end: 20100205
  5. DI ANTALVIC [Suspect]
     Indication: DRUG USE FOR UNKNOWN INDICATION
     Route: 048
     Dates: start: 20100201, end: 20100207

REACTIONS (4)
  - CEREBROVASCULAR ACCIDENT [None]
  - RASH [None]
  - TOXIC SKIN ERUPTION [None]
  - VASCULITIS [None]
